FAERS Safety Report 8036254-2 (Version None)
Quarter: 2012Q1

REPORT INFORMATION
  Report Type: 
  Country: None (occurrence: None)
  Receive Date: 20120111
  Receipt Date: 20111229
  Transmission Date: 20120608
  Serious: Yes (Other)
  Sender: FDA-Public Use
  Company Number: IT-ELI_LILLY_AND_COMPANY-IT201112007735

PATIENT
  Sex: Male

DRUGS (6)
  1. ASPIRIN [Concomitant]
  2. TICLOPIDINE HCL [Concomitant]
  3. ATORVASTATIN CALCIUM [Concomitant]
  4. GEMZAR [Suspect]
     Indication: LUNG CANCER METASTATIC
     Dosage: 1920 MG, CYCLE
     Dates: start: 20110709
  5. CARBOPLATIN [Concomitant]
     Indication: LUNG CANCER METASTATIC
     Dosage: 633MG/CYCLE
     Route: 042
     Dates: start: 20110709, end: 20110825
  6. OMEPRAZOLE [Concomitant]

REACTIONS (2)
  - DYSPNOEA EXERTIONAL [None]
  - MUSCULOSKELETAL PAIN [None]
